FAERS Safety Report 6059039-5 (Version None)
Quarter: 2009Q1

REPORT INFORMATION
  Report Type: 
  Country: None (occurrence: None)
  Receive Date: 20090130
  Receipt Date: 20090119
  Transmission Date: 20090719
  Serious: Yes (Hospitalization)
  Sender: FDA-Public Use
  Company Number: B0554711A

PATIENT
  Age: 57 Year
  Sex: Female

DRUGS (4)
  1. VENTOLIN [Suspect]
     Indication: ASTHMATIC CRISIS
     Route: 055
  2. SERETIDE [Concomitant]
     Route: 065
  3. CLARITIN [Concomitant]
     Route: 065
  4. PULMICORT-100 [Concomitant]
     Route: 065

REACTIONS (10)
  - ABDOMINAL PAIN UPPER [None]
  - DYSPNOEA [None]
  - EJECTION FRACTION DECREASED [None]
  - ELECTROCARDIOGRAM ABNORMAL [None]
  - HEPATOCELLULAR INJURY [None]
  - NAUSEA [None]
  - OVERDOSE [None]
  - STRESS CARDIOMYOPATHY [None]
  - ULTRASOUND SCAN ABNORMAL [None]
  - VOMITING [None]
